FAERS Safety Report 6581020-8 (Version None)
Quarter: 2010Q1

REPORT INFORMATION
  Report Type: 
  Country: None (occurrence: None)
  Receive Date: 20100215
  Receipt Date: 20100202
  Transmission Date: 20100710
  Serious: Yes (Hospitalization, Other)
  Sender: FDA-Public Use
  Company Number: US-ELI_LILLY_AND_COMPANY-US200912003692

PATIENT
  Sex: Female

DRUGS (12)
  1. FORTEO [Suspect]
     Indication: OSTEOPOROSIS
     Dosage: 20 UG, DAILY (1/D)
     Dates: start: 20070802, end: 20081201
  2. BONIVA [Concomitant]
     Dates: start: 20090101, end: 20090101
  3. AMARYL [Concomitant]
     Indication: DIABETES MELLITUS
  4. ELAVIL [Concomitant]
     Dosage: 15 MG, EACH EVENING
  5. LOMOTIL [Concomitant]
     Indication: INCONTINENCE
  6. PREDNISONE [Concomitant]
     Indication: POLYCHONDRITIS
     Dosage: 2.5 MG, UNK
  7. COREG [Concomitant]
     Indication: HYPERTENSION
  8. SIMVASTATIN [Concomitant]
     Indication: BLOOD CHOLESTEROL INCREASED
  9. NEURONTIN [Concomitant]
     Indication: DIABETIC NEUROPATHY
  10. SYNTHROID [Concomitant]
     Indication: HYPOTHYROIDISM
     Dosage: 0.037 MG, DAILY (1/D)
  11. VICODIN [Concomitant]
     Indication: PAIN
     Dosage: UNK, AS NEEDED
  12. FENTANYL /00174601/ [Concomitant]
     Indication: PAIN
     Dosage: UNK, OTHER

REACTIONS (27)
  - ANAL SPHINCTER ATONY [None]
  - ASTHENIA [None]
  - BACK PAIN [None]
  - BEDRIDDEN [None]
  - BONE DENSITY DECREASED [None]
  - BONE DISORDER [None]
  - BONE PAIN [None]
  - DEPRESSION [None]
  - EROSIVE OESOPHAGITIS [None]
  - FAECAL INCONTINENCE [None]
  - FALL [None]
  - FEAR OF DEATH [None]
  - FEELING ABNORMAL [None]
  - GAIT DISTURBANCE [None]
  - GALLBLADDER DISORDER [None]
  - GALLBLADDER ENLARGEMENT [None]
  - GLOSSODYNIA [None]
  - HYPERTENSION [None]
  - HYPOPHAGIA [None]
  - MALAISE [None]
  - MOBILITY DECREASED [None]
  - MUSCLE SPASMS [None]
  - MYALGIA [None]
  - NECK PAIN [None]
  - NERVOUSNESS [None]
  - ORAL FUNGAL INFECTION [None]
  - VOMITING [None]
